FAERS Safety Report 6860222-7 (Version None)
Quarter: 2010Q3

REPORT INFORMATION
  Report Type: 
  Country: None (occurrence: None)
  Receive Date: 20100719
  Receipt Date: 20100719
  Transmission Date: 20110219
  Serious: No
  Sender: FDA-Public Use
  Company Number: None

PATIENT
  Age: 43 Year
  Sex: Female
  Weight: 68 kg

DRUGS (1)
  1. CARBAMAZEPINE [Suspect]
     Indication: CONVULSION
     Dosage: 200 MG BID
     Dates: start: 20100405, end: 20100416

REACTIONS (2)
  - DERMATITIS CONTACT [None]
  - ERYTHEMA MULTIFORME [None]
